FAERS Safety Report 12288600 (Version 3)
Quarter: 2017Q1

REPORT INFORMATION
  Report Type: Report from Study
  Country: CA (occurrence: CA)
  Receive Date: 20160421
  Receipt Date: 20170119
  Transmission Date: 20170428
  Serious: Yes (Death, Hospitalization)
  Sender: FDA-Public Use
  Company Number: CA-ROCHE-1743788

PATIENT
  Age: 46 Year
  Sex: Female

DRUGS (5)
  1. AFINITOR [Suspect]
     Active Substance: EVEROLIMUS
     Indication: NEUROENDOCRINE TUMOUR
     Dosage: THERAPY DURATION: 2 YEARS
     Route: 048
  2. SANDOSTATIN LAR DEPOT [Suspect]
     Active Substance: OCTREOTIDE ACETATE
     Indication: NEUROENDOCRINE TUMOUR
     Route: 030
  3. FUROSEMIDE. [Concomitant]
     Active Substance: FUROSEMIDE
     Indication: PRODUCT USED FOR UNKNOWN INDICATION
     Route: 065
  4. CAPECITABINE. [Suspect]
     Active Substance: CAPECITABINE
     Indication: PRODUCT USED FOR UNKNOWN INDICATION
     Route: 065
  5. SANDOSTATIN LAR DEPOT [Suspect]
     Active Substance: OCTREOTIDE ACETATE
     Route: 030

REACTIONS (27)
  - Cough [Fatal]
  - Fatigue [Fatal]
  - Respiratory rate increased [Fatal]
  - Sepsis [Fatal]
  - Decreased appetite [Fatal]
  - Tearfulness [Fatal]
  - Ascites [Fatal]
  - Malignant neoplasm progression [Fatal]
  - Weight decreased [Fatal]
  - Malaise [Fatal]
  - Alopecia [Fatal]
  - Poor quality sleep [Fatal]
  - Hypersomnia [Fatal]
  - Inappropriate schedule of drug administration [Fatal]
  - Musculoskeletal pain [Fatal]
  - Night sweats [Fatal]
  - Blood glucose decreased [Fatal]
  - Diarrhoea [Fatal]
  - General physical health deterioration [Fatal]
  - Haemoglobin decreased [Not Recovered/Not Resolved]
  - Asthenia [Fatal]
  - Blood pressure decreased [Fatal]
  - Neck pain [Fatal]
  - Neoplasm [Fatal]
  - Infection [Fatal]
  - Abdominal distension [Fatal]
  - Pyrexia [Fatal]
